FAERS Safety Report 8350440-3 (Version None)
Quarter: 2012Q2

REPORT INFORMATION
  Report Type: 
  Country: None (occurrence: None)
  Receive Date: 20120510
  Receipt Date: 20120429
  Transmission Date: 20120825
  Serious: Yes (Hospitalization, Other)
  Sender: FDA-Public Use
  Company Number: CA-BRISTOL-MYERS SQUIBB COMPANY-16202483

PATIENT
  Age: 72 Year
  Sex: Female

DRUGS (17)
  1. LYRICA [Suspect]
  2. CYMBALTA [Suspect]
  3. ARAVA [Suspect]
  4. AMILORIDE HYDROCHLORIDE [Concomitant]
  5. CALCIUM [Concomitant]
  6. HYDROMORPHONE HCL [Concomitant]
  7. DILAUDID [Suspect]
  8. ORENCIA [Suspect]
     Indication: RHEUMATOID ARTHRITIS
     Dosage: LAST DOSE ON 20OCT11,15DEC11,16DEC11,7FEB12,06MAR12 NO OF INF:8, ALSO EVERY 4 WEEK,EXP:MA2014
     Route: 042
     Dates: start: 20110801
  9. ALENDRONATE SODIUM [Concomitant]
  10. PREDNISONE TAB [Suspect]
  11. ACETAMINOPHEN [Concomitant]
  12. NAPROXEN [Concomitant]
  13. NEXIUM [Concomitant]
  14. OXYBUTYNIN [Concomitant]
  15. PRAMIPEXOLE DIHYDROCHLORIDE [Concomitant]
  16. ATENOLOL [Concomitant]
  17. CALCITONIN SALMON [Concomitant]

REACTIONS (14)
  - SLEEP APNOEA SYNDROME [None]
  - URINARY TRACT INFECTION [None]
  - WEIGHT DECREASED [None]
  - NAUSEA [None]
  - DIARRHOEA [None]
  - VISUAL IMPAIRMENT [None]
  - INFLAMMATION [None]
  - WOUND COMPLICATION [None]
  - ABDOMINAL PAIN [None]
  - ONYCHOCLASIS [None]
  - VOMITING [None]
  - BURSITIS [None]
  - HAEMOGLOBIN DECREASED [None]
  - ASTHENIA [None]
